FAERS Safety Report 5954691-4 (Version None)
Quarter: 2008Q4

REPORT INFORMATION
  Report Type: 
  Country: None (occurrence: None)
  Receive Date: 20081117
  Receipt Date: 20081106
  Transmission Date: 20090506
  Serious: Yes (Other)
  Sender: FDA-Public Use
  Company Number: PHHY2008FR27531

PATIENT
  Age: 54 Year
  Sex: Male

DRUGS (1)
  1. LEPONEX / LX [Suspect]
     Dosage: 300 MG/DAY
     Route: 048

REACTIONS (4)
  - DYSPNOEA [None]
  - EOSINOPHIL COUNT INCREASED [None]
  - PERICARDITIS [None]
  - PLEURISY [None]
